FAERS Safety Report 6435243-9 (Version None)
Quarter: 2009Q4

REPORT INFORMATION
  Report Type: 
  Country: None (occurrence: None)
  Receive Date: 20091110
  Receipt Date: 20091027
  Transmission Date: 20100525
  Serious: Yes (Other)
  Sender: FDA-Public Use
  Company Number: DE-MYLANLABS-2009S1018845

PATIENT
  Sex: Female

DRUGS (1)
  1. METODURA ZNT [Suspect]
     Indication: DRUG USE FOR UNKNOWN INDICATION
     Route: 048

REACTIONS (3)
  - ANXIETY [None]
  - DYSPNOEA [None]
  - PERIPHERAL COLDNESS [None]
